FAERS Safety Report 16155080 (Version 4)
Quarter: 2019Q4

REPORT INFORMATION
  Report Type: Report from Study
  Country: US (occurrence: US)
  Receive Date: 20190403
  Receipt Date: 20191007
  Transmission Date: 20200122
  Serious: Yes (Other)
  Sender: FDA-Public Use
  Company Number: US-ACTELION-A-NJ2019-188563

PATIENT
  Sex: Male

DRUGS (2)
  1. AMLODIPINE [Concomitant]
     Active Substance: AMLODIPINE BESYLATE
  2. OPSUMIT [Suspect]
     Active Substance: MACITENTAN
     Indication: PULMONARY ARTERIAL HYPERTENSION
     Dosage: 10 MG, QD
     Route: 048

REACTIONS (19)
  - Condition aggravated [Unknown]
  - Skin tightness [Unknown]
  - Oxygen consumption increased [Unknown]
  - Balance disorder [Unknown]
  - Dyspnoea exertional [Not Recovered/Not Resolved]
  - Chest pain [Unknown]
  - Rib fracture [Unknown]
  - Weight increased [Unknown]
  - Productive cough [Unknown]
  - Swelling face [Unknown]
  - Neuropathy peripheral [Not Recovered/Not Resolved]
  - Fracture pain [Unknown]
  - Abdominal distension [Unknown]
  - Palpitations [Unknown]
  - Dyspnoea [Not Recovered/Not Resolved]
  - Loss of personal independence in daily activities [Unknown]
  - Seasonal allergy [Unknown]
  - Dizziness postural [Unknown]
  - Peripheral swelling [Unknown]
